FAERS Safety Report 8389790-3 (Version None)
Quarter: 2012Q2

REPORT INFORMATION
  Report Type: 
  Country: None (occurrence: None)
  Receive Date: 20120529
  Receipt Date: 20120524
  Transmission Date: 20120825
  Serious: Yes (Other)
  Sender: FDA-Public Use
  Company Number: PHHY2012CA003274

PATIENT
  Sex: Male

DRUGS (3)
  1. ZOLEDRONOC ACID [Suspect]
     Indication: OSTEOPOROSIS
     Dosage: 5 MG, YEARLY
     Route: 042
     Dates: start: 20090923
  2. CALCITONIN SALMON [Concomitant]
     Indication: OSTEOPOROSIS
  3. ZOLEDRONOC ACID [Suspect]
     Dosage: 5 MG, YEARLY
     Route: 042
     Dates: start: 20100929

REACTIONS (4)
  - FRACTURE [None]
  - SPINAL COMPRESSION FRACTURE [None]
  - SPINAL PAIN [None]
  - GAIT DISTURBANCE [None]
